FAERS Safety Report 14286779 (Version 1)
Quarter: 2017Q4

REPORT INFORMATION
  Report Type: Spontaneous
  Country: US (occurrence: US)
  Receive Date: 20171214
  Receipt Date: 20171214
  Transmission Date: 20180321
  Serious: No
  Sender: FDA-Public Use
  Company Number: US-ASTELLAS-2017US029433

PATIENT
  Sex: Female
  Weight: 51 kg

DRUGS (1)
  1. TARCEVA [Suspect]
     Active Substance: ERLOTINIB HYDROCHLORIDE
     Indication: NON-SMALL CELL LUNG CANCER
     Dosage: UNK UNK, UNKNOWN FREQ.
     Route: 065
     Dates: end: 20170607

REACTIONS (6)
  - Pain [Unknown]
  - Muscle spasms [Unknown]
  - Abscess oral [Unknown]
  - Pruritus [Unknown]
  - Mouth ulceration [Unknown]
  - Dysphagia [Unknown]
